FAERS Safety Report 20746235 (Version 2)
Quarter: 2022Q2

REPORT INFORMATION
  Report Type: Spontaneous
  Country: US (occurrence: US)
  Receive Date: 20220425
  Receipt Date: 20220513
  Transmission Date: 20220721
  Serious: Yes (Hospitalization, Other)
  Sender: FDA-Public Use
  Company Number: US-AMGEN-USASP2022067797

PATIENT
  Age: 51 Year
  Sex: Male

DRUGS (1)
  1. REPATHA [Suspect]
     Active Substance: EVOLOCUMAB
     Indication: Hypercholesterolaemia
     Dosage: UNK
     Route: 065

REACTIONS (11)
  - Cardiac disorder [Unknown]
  - Malaise [Unknown]
  - Spinal compression fracture [Unknown]
  - Fall [Unknown]
  - Product storage error [Unknown]
  - Visual impairment [Unknown]
  - Blepharospasm [Unknown]
  - Gastroenteritis viral [Recovered/Resolved]
  - Feeling abnormal [Unknown]
  - Wrong technique in product usage process [Unknown]
  - Dizziness [Unknown]

NARRATIVE: CASE EVENT DATE: 20220101
